FAERS Safety Report 11930191 (Version 1)
Quarter: 2016Q1

REPORT INFORMATION
  Report Type: Spontaneous
  Country: US (occurrence: None)
  Receive Date: 20160119
  Receipt Date: 20160119
  Transmission Date: 20160526
  Serious: No
  Sender: FDA-Public Use
  Company Number: None

PATIENT
  Age: 41 Year
  Sex: Female

DRUGS (11)
  1. TRIAMCINOLON [Concomitant]
  2. AMOX/K CLAV [Concomitant]
     Active Substance: AMOXICILLIN\CLAVULANATE POTASSIUM
  3. TOUJEO [Concomitant]
     Active Substance: INSULIN GLARGINE
  4. LEVETIRACETA [Concomitant]
  5. TIZANIDINE. [Concomitant]
     Active Substance: TIZANIDINE
  6. CITALOPRAM [Concomitant]
     Active Substance: CITALOPRAM HYDROBROMIDE
  7. MODAFINIL. [Concomitant]
     Active Substance: MODAFINIL
  8. TYKERB [Suspect]
     Active Substance: LAPATINIB DITOSYLATE
     Indication: BREAST CANCER
     Route: 048
     Dates: start: 20150826, end: 20160114
  9. CAPECITABINE 500 MG TAB TEVA PHARMACEUTICALS [Suspect]
     Active Substance: CAPECITABINE
     Dosage: 3500 MG, 3 TAB AM 4 TAB PM PO
     Dates: start: 20150806, end: 20160114
  10. LAMOTRIGINE. [Concomitant]
     Active Substance: LAMOTRIGINE
  11. METHYLPHENID [Concomitant]
     Active Substance: METHYLPHENIDATE

REACTIONS (1)
  - Drug ineffective [None]

NARRATIVE: CASE EVENT DATE: 20160114
